FAERS Safety Report 8437379-X (Version None)
Quarter: 2012Q2

REPORT INFORMATION
  Report Type: 
  Country: None (occurrence: None)
  Receive Date: 20120614
  Receipt Date: 20120314
  Transmission Date: 20120825
  Serious: No
  Sender: FDA-Public Use
  Company Number: US-AMGEN-USASP2012016646

PATIENT
  Age: 91 Year
  Sex: Female

DRUGS (9)
  1. LEUCOVORIN CALCIUM [Concomitant]
     Dosage: 1 MG, QD
  2. PROLIA [Suspect]
     Indication: OSTEOPOROSIS POSTMENOPAUSAL
     Dosage: 60 MG, Q6MO
     Dates: start: 20120214
  3. NORTRIPTYLINE HYDROCHLORIDE [Concomitant]
     Dosage: 2 MG, QD
  4. VITAMIN D [Concomitant]
     Dosage: 1 IU, QD
  5. ACIPHEX [Concomitant]
     Dosage: 1 MG, QD
  6. DIOVAN [Concomitant]
     Dosage: UNK
  7. FLUOXETINE [Concomitant]
     Dosage: 1 MG, QD
  8. SYNTHROID [Concomitant]
     Dosage: 1 MUG, QD
  9. OSCAL D [Concomitant]
     Dosage: 1 MG, QD

REACTIONS (5)
  - ORAL NEOPLASM [None]
  - AGEUSIA [None]
  - FATIGUE [None]
  - ORAL DISCOMFORT [None]
  - GINGIVAL PAIN [None]
